FAERS Safety Report 9557467 (Version 2)
Quarter: 2013Q3

REPORT INFORMATION
  Report Type: Report from Study
  Country: CA (occurrence: CA)
  Receive Date: 20130926
  Receipt Date: 20130926
  Transmission Date: 20140515
  Serious: Yes (Other)
  Sender: FDA-Public Use
  Company Number: CA-ABBVIE-13P-028-1123501-00

PATIENT
  Age: 38 Year
  Sex: Female

DRUGS (2)
  1. HUMIRA [Suspect]
     Indication: CROHN^S DISEASE
     Route: 058
  2. IMURAN [Concomitant]
     Indication: CROHN^S DISEASE

REACTIONS (6)
  - Intestinal obstruction [Not Recovered/Not Resolved]
  - Gastrointestinal pain [Not Recovered/Not Resolved]
  - Umbilical hernia [Unknown]
  - Flatulence [Unknown]
  - Ascites [Unknown]
  - Gastrointestinal inflammation [Unknown]
